FAERS Safety Report 9767836 (Version 1)
Quarter: 2013Q4

REPORT INFORMATION
  Report Type: Spontaneous
  Country: US (occurrence: None)
  Receive Date: 20131213
  Receipt Date: 20131213
  Transmission Date: 20140711
  Serious: Yes (Hospitalization)
  Sender: FDA-Public Use
  Company Number: ALLO20130038

PATIENT
  Age: 61 Year
  Sex: Male

DRUGS (1)
  1. ALLOPURINOL TABLETS (ALLOPURINOL) (200 MILLIGRAM, UNKNOWN) (ALLOPURINOL) [Suspect]
     Indication: GOUT
     Dosage: 200MG, DAILY, UNKNOWN

REACTIONS (1)
  - Drug reaction with eosinophilia and systemic symptoms [None]
